FAERS Safety Report 24438264 (Version 2)
Quarter: 2024Q4

REPORT INFORMATION
  Report Type: Report from Study
  Country: US (occurrence: US)
  Receive Date: 20241015
  Receipt Date: 20241104
  Transmission Date: 20250115
  Serious: Yes (Hospitalization)
  Sender: FENNEC PHARMACEUTICALS
  Company Number: US-FENNEC PHARMACEUTICALS, INC.-2024FEN00045

PATIENT
  Age: 4 Year
  Sex: Male
  Weight: 15.6 kg

DRUGS (12)
  1. SODIUM THIOSULFATE [Suspect]
     Active Substance: SODIUM THIOSULFATE
     Indication: Chemotherapy side effect prophylaxis
     Dosage: ^MULTIPLE DOSES^
     Dates: start: 20240919, end: 20241017
  2. VORINOSTAT [Suspect]
     Active Substance: VORINOSTAT
     Indication: Hepatoblastoma
     Dosage: 230 MG/M2, 1X/DAY (DAYS 1-4); CYCLE 1
     Route: 048
     Dates: start: 20240918, end: 20240921
  3. VORINOSTAT [Suspect]
     Active Substance: VORINOSTAT
     Dosage: 230 MG/M2, 1X/DAY (DAYS 8-11); CYCLE 1
     Route: 048
     Dates: start: 20240925, end: 20240927
  4. VORINOSTAT [Suspect]
     Active Substance: VORINOSTAT
     Dosage: 230 MG/M2, 1X/DAY (DAYS 8-11); CYCLE 1
     Route: 048
     Dates: start: 20240929, end: 20240929
  5. VORINOSTAT [Suspect]
     Active Substance: VORINOSTAT
     Dosage: 230 MG/M2, 1X/DAY (DAYS 1-4); CYCLE 2
     Route: 048
     Dates: start: 20241009, end: 20241012
  6. VORINOSTAT [Suspect]
     Active Substance: VORINOSTAT
     Dosage: 230 MG/M2, 1X/DAY (DAYS 8-11); CYCLE 2
     Route: 048
     Dates: start: 20241016, end: 20241019
  7. CISPLATIN [Suspect]
     Active Substance: CISPLATIN
     Indication: Hepatoblastoma
     Dosage: 6.2 G ON DAYS 2 AND 9; CYCLE 1
     Dates: start: 20240919, end: 20240919
  8. CISPLATIN [Suspect]
     Active Substance: CISPLATIN
     Dosage: 6.2 G ON DAYS 2 AND 9; CYCLE 1
     Dates: start: 20240926, end: 20240926
  9. CISPLATIN [Suspect]
     Active Substance: CISPLATIN
     Dosage: 70 MG/M2 ON DAYS 2 AND 9; CYCLE 2
     Dates: start: 20241010, end: 20241010
  10. CISPLATIN [Suspect]
     Active Substance: CISPLATIN
     Dosage: 70 MG/M2 ON DAYS 2 AND 9; CYCLE 2
     Dates: start: 20241017, end: 20241017
  11. PEGFILGRASTIM [Suspect]
     Active Substance: PEGFILGRASTIM
     Dosage: 1 DOSAGE UNITS, ONCE
     Dates: start: 20240929, end: 20240929
  12. PEGFILGRASTIM [Suspect]
     Active Substance: PEGFILGRASTIM
     Dosage: 1 DOSAGE UNITS, ONCE
     Dates: start: 20241018, end: 20241018

REACTIONS (2)
  - Acute kidney injury [Recovering/Resolving]
  - Pyrexia [Unknown]

NARRATIVE: CASE EVENT DATE: 20240929
